FAERS Safety Report 4325377-7 (Version None)
Quarter: 2004Q1

REPORT INFORMATION
  Report Type: 
  Country: None (occurrence: None)
  Receive Date: 20040324
  Receipt Date: 20040310
  Transmission Date: 20041129
  Serious: Yes (Death, Hospitalization)
  Sender: FDA-Public Use
  Company Number: 04P-062-0252269-00

PATIENT
  Age: 76 Year
  Sex: Male

DRUGS (1)
  1. KLACID SAFT (BIAXIN GRANULES) (CLARITHROMYCIN) (CLARITHROMYCIN) [Suspect]
     Indication: INFECTION
     Dosage: OTHER
     Dates: start: 20040125

REACTIONS (3)
  - CACHEXIA [None]
  - CATHETER RELATED COMPLICATION [None]
  - OESOPHAGEAL CARCINOMA [None]
